FAERS Safety Report 9701668 (Version 1)
Quarter: 2013Q4

REPORT INFORMATION
  Report Type: Spontaneous
  Country: US (occurrence: US)
  Receive Date: 20131119
  Receipt Date: 20131119
  Transmission Date: 20140711
  Serious: No
  Sender: FDA-Public Use
  Company Number: US-ORACLE-2012S1000014

PATIENT
  Age: 37 Year
  Sex: Male

DRUGS (6)
  1. KRYSTEXXA INJECTION [Suspect]
     Indication: GOUT
     Route: 042
     Dates: start: 20120105, end: 20120229
  2. FLONASE [Concomitant]
     Indication: PRODUCT USED FOR UNKNOWN INDICATION
  3. ANALGESICS [Concomitant]
     Indication: PRODUCT USED FOR UNKNOWN INDICATION
  4. PREDNISONE [Concomitant]
     Indication: PRODUCT USED FOR UNKNOWN INDICATION
  5. ANTIHISTAMINES [Concomitant]
     Indication: PREMEDICATION
     Dates: start: 20120105, end: 20120229
  6. CORTICOSTEROIDS [Concomitant]
     Indication: PREMEDICATION
     Dates: start: 20120105, end: 20120229

REACTIONS (1)
  - Therapeutic response decreased [Unknown]
